FAERS Safety Report 9001007 (Version 1)
Quarter: 2013Q1

REPORT INFORMATION
  Report Type: Spontaneous
  Country: US (occurrence: None)
  Receive Date: 20130103
  Receipt Date: 20130103
  Transmission Date: 20140127
  Serious: Yes (Death)
  Sender: FDA-Public Use
  Company Number: None

PATIENT
  Age: 56 Year
  Sex: Male
  Weight: 106.6 kg

DRUGS (1)
  1. ACTEMRA [Suspect]
     Indication: RHEUMATOID ARTHRITIS
     Route: 042
     Dates: start: 20121228, end: 20121228

REACTIONS (5)
  - Infusion related reaction [None]
  - Urticaria [None]
  - Anaphylactic shock [None]
  - Treatment failure [None]
  - Loss of consciousness [None]
